FAERS Safety Report 6035341-8 (Version None)
Quarter: 2009Q1

REPORT INFORMATION
  Report Type: 
  Country: None (occurrence: None)
  Receive Date: 20090112
  Receipt Date: 20090112
  Transmission Date: 20090719
  Serious: No
  Sender: FDA-Public Use
  Company Number: None

PATIENT

DRUGS (2)
  1. ADENOSINE 12MG/4ML SAGENT PHARMACEUTICALS [Suspect]
  2. PRIMARY IV SET HOSPIRA [Suspect]

REACTIONS (2)
  - DEVICE CONNECTION ISSUE [None]
  - MEDICATION ERROR [None]
